FAERS Safety Report 23885917 (Version 2)
Quarter: 2024Q3

REPORT INFORMATION
  Report Type: Spontaneous
  Country: RU (occurrence: RU)
  Receive Date: 20240522
  Receipt Date: 20240828
  Transmission Date: 20241017
  Serious: Yes (Other)
  Sender: VERTEX
  Company Number: None

PATIENT
  Sex: Male
  Weight: 12.6 kg

DRUGS (21)
  1. ORKAMBI [Suspect]
     Active Substance: IVACAFTOR\LUMACAFTOR
     Indication: Cystic fibrosis
     Dosage: 100MG LUMACAFTOR/125MG IVACAFTOR
     Route: 048
     Dates: start: 20230902, end: 20240412
  2. CREON [Concomitant]
     Active Substance: PANCRELIPASE AMYLASE\PANCRELIPASE LIPASE\PANCRELIPASE PROTEASE
     Dosage: 4 CAPSULES WITH MEAL
     Route: 048
     Dates: start: 20210804
  3. URSODIOL [Concomitant]
     Active Substance: URSODIOL
     Dosage: 7 ML (SUSPENSION)
     Route: 048
     Dates: start: 20210920
  4. NEXIUM [Concomitant]
     Active Substance: ESOMEPRAZOLE MAGNESIUM
     Indication: Cystic fibrosis
  5. PANCRELIPASE [Concomitant]
     Active Substance: PANCRELIPASE\PANCRELIPASE AMYLASE\PANCRELIPASE LIPASE\PANCRELIPASE PROTEASE
     Indication: Cystic fibrosis
     Dosage: 230,000 U
  6. OCTENIDINE\PHENOXYETHANOL [Concomitant]
     Active Substance: OCTENIDINE\PHENOXYETHANOL
     Dosage: 15 ML
  7. TOBRAMYCIN [Concomitant]
     Active Substance: TOBRAMYCIN\TOBRAMYCIN SULFATE
     Dosage: 2 DROPS/EYE (EYE DROPS)
     Route: 047
  8. CIPROLET [Concomitant]
     Dosage: 2 DROPS/EYE (EYE DROPS)
     Route: 047
  9. DEZRINIT [Concomitant]
     Dosage: 1 DOSAGE FORM, QD (AT NIGHT)
     Route: 045
  10. NASONEX [Concomitant]
     Active Substance: MOMETASONE FUROATE
     Dosage: 1 DOSAGE FORM, QD (AT NIGHT)
     Route: 045
  11. BUDESONIDE [Concomitant]
     Active Substance: BUDESONIDE
     Indication: Irrigation therapy
     Dosage: WITH PARI MONTESOL
  12. PULMOZYME [Concomitant]
     Active Substance: DORNASE ALFA
     Indication: Cystic fibrosis
     Dosage: UNK
     Dates: start: 202202, end: 202303
  13. PULMOZYME [Concomitant]
     Active Substance: DORNASE ALFA
     Dosage: FOR LIFE-SAVING INDICATIONS
     Dates: start: 2023
  14. PULMICORT TURBUHALER [Concomitant]
     Active Substance: BUDESONIDE
     Indication: Infective pulmonary exacerbation of cystic fibrosis
     Dosage: 250 MICROGRAM, BID
  15. PULMICORT TURBUHALER [Concomitant]
     Active Substance: BUDESONIDE
     Dosage: UNK
     Dates: start: 20231228, end: 20240106
  16. PULMICORT TURBUHALER [Concomitant]
     Active Substance: BUDESONIDE
     Dosage: UNK
     Dates: start: 20240305, end: 20240318
  17. FENOTEROL HYDROBROMIDE\IPRATROPIUM BROMIDE [Concomitant]
     Active Substance: FENOTEROL HYDROBROMIDE\IPRATROPIUM BROMIDE
     Indication: Dyspnoea
     Dosage: 10 DROPS, TID (THEN 4 TIMES A DAY UNTIL THE SEIZURE IS MANAGED)
  18. FENOTEROL HYDROBROMIDE\IPRATROPIUM BROMIDE [Concomitant]
     Active Substance: FENOTEROL HYDROBROMIDE\IPRATROPIUM BROMIDE
     Indication: Seizure
  19. BISEPTOL [Concomitant]
     Active Substance: SULFAMETHOXAZOLE\TRIMETHOPRIM
     Indication: Stenotrophomonas infection
     Dosage: SUSPENSION
     Dates: start: 20230811, end: 20230901
  20. BISEPTOL [Concomitant]
     Active Substance: SULFAMETHOXAZOLE\TRIMETHOPRIM
     Dosage: UNK
     Dates: start: 20240107, end: 20240116
  21. FLUIMUCIL-ANTIBIOTIC IT [Concomitant]
     Indication: Stenotrophomonas infection
     Dosage: UNK

REACTIONS (9)
  - Hepatomegaly [Recovering/Resolving]
  - Hepatic fibrosis [Recovering/Resolving]
  - Respiratory tract infection [Not Recovered/Not Resolved]
  - Drug ineffective [Unknown]
  - Vomiting [Unknown]
  - Blood alkaline phosphatase decreased [Unknown]
  - Retinal disorder [Unknown]
  - Abdominal pain [Not Recovered/Not Resolved]
  - Urinary tract infection bacterial [Unknown]

NARRATIVE: CASE EVENT DATE: 20230101
